FAERS Safety Report 25001772 (Version 3)
Quarter: 2025Q1

REPORT INFORMATION
  Report Type: Spontaneous
  Country: US (occurrence: US)
  Receive Date: 20250224
  Receipt Date: 20250315
  Transmission Date: 20250409
  Serious: No
  Sender: ROCHE
  Company Number: US-ROCHE-10000211502

PATIENT
  Age: 98 Year
  Sex: Female
  Weight: 63.5 kg

DRUGS (2)
  1. XOLAIR PFS [Suspect]
     Active Substance: OMALIZUMAB
     Indication: Pruritus
     Dosage: FORM STRENGTH: 150MG/ML
     Route: 058
     Dates: start: 20220321
  2. XOLAIR PFS [Suspect]
     Active Substance: OMALIZUMAB
     Indication: Chronic spontaneous urticaria

REACTIONS (2)
  - Off label use [Unknown]
  - No adverse event [Unknown]
